FAERS Safety Report 8769719 (Version 2)
Quarter: 2013Q4

REPORT INFORMATION
  Report Type: Spontaneous
  Country: US (occurrence: US)
  Receive Date: 20120905
  Receipt Date: 20131101
  Transmission Date: 20140711
  Serious: No
  Sender: FDA-Public Use
  Company Number: US-009507513-1208USA011264

PATIENT
  Sex: Female

DRUGS (4)
  1. PEGINTRON [Suspect]
     Indication: HEPATITIS C
     Dosage: UNK
     Route: 058
     Dates: start: 20120804
  2. REBETOL [Suspect]
     Indication: HEPATITIS C
     Dosage: UNK
     Route: 048
     Dates: start: 20120804
  3. HIV VACCINE (UNSPECIFIED) [Concomitant]
     Indication: HIV CARRIER
  4. [THERAPY UNSPECIFIED] [Concomitant]

REACTIONS (11)
  - Dry throat [Unknown]
  - Dysphonia [Unknown]
  - Injection site haemorrhage [Unknown]
  - Nausea [Unknown]
  - Abdominal distension [Unknown]
  - Dysgeusia [Unknown]
  - Depressed mood [Unknown]
  - Heart rate increased [Unknown]
  - Fatigue [Unknown]
  - Dyspnoea [Unknown]
  - Hot flush [Unknown]
